FAERS Safety Report 7127934-1 (Version None)
Quarter: 2010Q4

REPORT INFORMATION
  Report Type: 
  Country: None (occurrence: None)
  Receive Date: 20101112
  Receipt Date: 20101029
  Transmission Date: 20110411
  Serious: Yes (Other)
  Sender: FDA-Public Use
  Company Number: 2010S1000914

PATIENT
  Age: 46 Year
  Sex: Male

DRUGS (1)
  1. LIVALO [Suspect]
     Dosage: 2 MG; PO
     Route: 048
     Dates: start: 20100901, end: 20101027

REACTIONS (2)
  - ALANINE AMINOTRANSFERASE INCREASED [None]
  - ASPARTATE AMINOTRANSFERASE INCREASED [None]
